FAERS Safety Report 5869902-3 (Version None)
Quarter: 2008Q3

REPORT INFORMATION
  Report Type: 
  Country: None (occurrence: None)
  Receive Date: 20080904
  Receipt Date: 20080826
  Transmission Date: 20090109
  Serious: Yes (Hospitalization)
  Sender: FDA-Public Use
  Company Number: PHHO2007PL08468

PATIENT
  Sex: Male
  Weight: 81 kg

DRUGS (4)
  1. TASIGNA [Suspect]
     Indication: CHRONIC MYELOID LEUKAEMIA
     Dosage: 400 MG, BID
     Route: 048
     Dates: start: 20070404, end: 20070509
  2. VITANON [Concomitant]
  3. MILURIT [Concomitant]
  4. ESSENTIALE [Concomitant]

REACTIONS (6)
  - HYPOTENSION [None]
  - NEUTROPENIA [None]
  - PNEUMONIA KLEBSIELLA [None]
  - PYREXIA [None]
  - SEPSIS [None]
  - THROMBOCYTOPENIA [None]
